FAERS Safety Report 7909173-7 (Version None)
Quarter: 2011Q4

REPORT INFORMATION
  Report Type: 
  Country: None (occurrence: None)
  Receive Date: 20111111
  Receipt Date: 20110504
  Transmission Date: 20120403
  Serious: No
  Sender: FDA-Public Use
  Company Number: US-GLAXOSMITHKLINE-A0926637A

PATIENT
  Sex: Male
  Weight: 74.1 kg

DRUGS (5)
  1. LORTAB [Concomitant]
     Dosage: 1TAB TWICE PER DAY
     Route: 048
  2. ASPIRIN [Concomitant]
     Dosage: 81MG PER DAY
  3. COREG [Suspect]
     Indication: PRODUCT USED FOR UNKNOWN INDICATION
     Dosage: 25MG TWICE PER DAY
     Route: 048
  4. LISINOPRIL [Concomitant]
     Dosage: 20MG PER DAY
     Route: 048
  5. SAW PALMETTO [Concomitant]
     Dosage: 500MG PER DAY
     Route: 048

REACTIONS (4)
  - DIZZINESS [None]
  - CHEST DISCOMFORT [None]
  - BLOOD PRESSURE INCREASED [None]
  - FATIGUE [None]
